FAERS Safety Report 8883581 (Version 1)
Quarter: 2012Q4

REPORT INFORMATION
  Report Type: 
  Country: DE (occurrence: GB)
  Receive Date: 20121102
  Receipt Date: 20121102
  Transmission Date: 20130627
  Serious: Yes (Disabling)
  Sender: FDA-Public Use
  Company Number: GB-BRISTOL-MYERS SQUIBB COMPANY-16941510

PATIENT
  Age: 64 Year
  Sex: Female

DRUGS (7)
  1. GLUCOPHAGE [Suspect]
     Dosage: Glucophage SR, 500mg/D (18month ago), (1000 mg/d)2mo ago and again 500mg
  2. BENDROFLUMETHIAZIDE [Concomitant]
     Indication: HYPERTENSION
     Route: 048
  3. LISINOPRIL [Concomitant]
     Indication: HYPERTENSION
     Route: 048
  4. BISOPROLOL [Concomitant]
     Route: 048
  5. LANSOPRAZOLE [Concomitant]
     Route: 048
  6. LACTULOSE [Concomitant]
  7. COZAAR [Concomitant]
     Indication: BLOOD PRESSURE

REACTIONS (3)
  - Myalgia [Recovering/Resolving]
  - Muscle spasms [Unknown]
  - Restless legs syndrome [Recovering/Resolving]
